FAERS Safety Report 15603704 (Version 1)
Quarter: 2018Q4

REPORT INFORMATION
  Report Type: Spontaneous
  Country: US (occurrence: US)
  Receive Date: 20181109
  Receipt Date: 20181109
  Transmission Date: 20190205
  Serious: Yes (Hospitalization, Other)
  Sender: FDA-Public Use
  Company Number: US-ICU MEDICAL, INC.-ICU2018US00034

PATIENT
  Age: 5 Month
  Sex: Female

DRUGS (5)
  1. CEFTRIAXONE. [Suspect]
     Active Substance: CEFTRIAXONE
     Indication: URINARY TRACT INFECTION
     Route: 042
  2. VANCOMYCIN                         /00314402/ [Suspect]
     Active Substance: VANCOMYCIN
     Indication: ANTIBIOTIC THERAPY
     Route: 042
  3. 20 MEQ POTASSIUM CHLORIDE IN 5% DEXTROSE AND 0.45% NACL INJ (1000 ML) [Suspect]
     Active Substance: DEXTROSE\POTASSIUM CHLORIDE\SODIUM CHLORATE
     Indication: LISTLESS
     Dosage: 20 MILLIEQUIVALENT
     Route: 042
  4. NORMAL SALINE [Suspect]
     Active Substance: SODIUM CHLORIDE
     Indication: LISTLESS
     Route: 042
  5. DEXTROSE 10% [Suspect]
     Active Substance: DEXTROSE
     Indication: LISTLESS
     Dosage: 5 PERCENT
     Route: 042

REACTIONS (3)
  - Tachypnoea [Recovered/Resolved]
  - Mental status changes [Recovered/Resolved]
  - Botulism [Recovered/Resolved]
